FAERS Safety Report 10802296 (Version 2)
Quarter: 2015Q1

REPORT INFORMATION
  Report Type: Spontaneous
  Country: JP (occurrence: JP)
  Receive Date: 20150217
  Receipt Date: 20150316
  Transmission Date: 20150721
  Serious: Yes (Hospitalization, Other)
  Sender: FDA-Public Use
  Company Number: JP-PFIZER INC-2015059470

PATIENT
  Age: 64 Year
  Sex: Male
  Weight: 55 kg

DRUGS (63)
  1. CAMPTO [Suspect]
     Active Substance: IRINOTECAN
     Dosage: 180 MG (113.6 MG/M2), 1X/DAY
     Route: 041
     Dates: start: 20140818, end: 20140818
  2. ELPLAT [Suspect]
     Active Substance: OXALIPLATIN
     Dosage: 100 MG (63.1 MG/M2), 1X/DAY
     Route: 041
     Dates: start: 20140818, end: 20140818
  3. 5-FU [Suspect]
     Active Substance: FLUOROURACIL
     Dosage: 3700 MG (2335.9 MG/M2), ONCE IN 2DAYS
     Route: 041
     Dates: start: 20140714, end: 20140714
  4. 5-FU [Suspect]
     Active Substance: FLUOROURACIL
     Dosage: 600 MG (378.8 MG/M2), 1X/DAY
     Route: 040
     Dates: start: 20141020, end: 20141020
  5. LEVOFOLINATE CALCIUM [Concomitant]
     Active Substance: LEUCOVORIN CALCIUM
     Indication: PANCREATIC CARCINOMA
     Dosage: 300 MG (189.4 MG/M2)
     Dates: start: 20140529, end: 20141118
  6. EMEND [Concomitant]
     Active Substance: APREPITANT
     Dosage: UNK
     Dates: start: 20140529, end: 20141022
  7. PRIMIDONE. [Concomitant]
     Active Substance: PRIMIDONE
     Dosage: UNK
     Dates: start: 20140529, end: 20141120
  8. GRAN [Concomitant]
     Active Substance: FILGRASTIM
     Dosage: UNK
     Dates: start: 20141110, end: 20141112
  9. CAMPTO [Suspect]
     Active Substance: IRINOTECAN
     Dosage: 180 MG (113.6 MG/M2), 1X/DAY
     Route: 041
     Dates: start: 20141118, end: 20141118
  10. ELPLAT [Suspect]
     Active Substance: OXALIPLATIN
     Dosage: 130 MG (82.1 MG/M2), 1X/DAY
     Route: 041
     Dates: start: 20140714, end: 20140714
  11. 5-FU [Suspect]
     Active Substance: FLUOROURACIL
     Dosage: 3700 MG (2335.9 MG/M2), ONCE IN 2DAYS
     Route: 041
     Dates: start: 20140818, end: 20140818
  12. DIAMOX SEQUELS [Concomitant]
     Active Substance: ACETAZOLAMIDE
     Dosage: UNK
     Dates: start: 20140529, end: 20141120
  13. 5-FU [Suspect]
     Active Substance: FLUOROURACIL
     Dosage: 600 MG (378.8 MG/M2), 1X/DAY
     Route: 040
     Dates: start: 20140616, end: 20140616
  14. 5-FU [Suspect]
     Active Substance: FLUOROURACIL
     Dosage: 3700 MG (2335.9 MG/M2), ONCE IN 2DAYS
     Route: 041
     Dates: start: 20140728, end: 20140728
  15. 5-FU [Suspect]
     Active Substance: FLUOROURACIL
     Dosage: 600 MG (378.8 MG/M2), 1X/DAY
     Route: 040
     Dates: start: 20140818, end: 20140818
  16. 5-FU [Suspect]
     Active Substance: FLUOROURACIL
     Dosage: 600 MG (378.8 MG/M2), 1X/DAY
     Route: 040
     Dates: start: 20140916, end: 20140916
  17. 5-FU [Suspect]
     Active Substance: FLUOROURACIL
     Dosage: 3700 MG (2335.9 MG/M2), ONCE IN 2DAYS
     Route: 041
     Dates: start: 20141020, end: 20141020
  18. DEXART [Concomitant]
     Active Substance: DEXAMETHASONE SODIUM PHOSPHATE
     Dosage: UNK
     Dates: start: 20140529, end: 20141118
  19. HORIZON [Concomitant]
     Active Substance: DIAZEPAM
     Dosage: UNK
     Dates: start: 20140529, end: 20141120
  20. LAC-B [Concomitant]
     Active Substance: BIFIDOBACTERIUM SPP.
     Dosage: UNK
     Dates: start: 20140605, end: 20140720
  21. CAMPTO [Suspect]
     Active Substance: IRINOTECAN
     Dosage: 180 MG (113.6 MG/M2), 1X/DAY
     Route: 041
     Dates: start: 20140901, end: 20140901
  22. CAMPTO [Suspect]
     Active Substance: IRINOTECAN
     Dosage: 180 MG (113.6 MG/M2), 1X/DAY
     Route: 041
     Dates: start: 20140930, end: 20140930
  23. ELPLAT [Suspect]
     Active Substance: OXALIPLATIN
     Dosage: 100 MG (63.1 MG/M2), 1X/DAY
     Route: 041
     Dates: start: 20140916, end: 20140916
  24. ELPLAT [Suspect]
     Active Substance: OXALIPLATIN
     Dosage: 100 MG (63.1 MG/M2), 1X/DAY
     Route: 041
     Dates: start: 20141118, end: 20141118
  25. 5-FU [Suspect]
     Active Substance: FLUOROURACIL
     Indication: PANCREATIC CARCINOMA
     Dosage: 600 MG (378.8 MG/M2), 1X/DAY
     Route: 040
     Dates: start: 20140529, end: 20140529
  26. 5-FU [Suspect]
     Active Substance: FLUOROURACIL
     Dosage: 3700 MG (2335.9 MG/M2), ONCE IN 2DAYS
     Route: 041
     Dates: start: 20140630, end: 20140630
  27. 5-FU [Suspect]
     Active Substance: FLUOROURACIL
     Dosage: 600 MG (378.8 MG/M2), 1X/DAY
     Route: 040
     Dates: start: 20140728, end: 20140728
  28. 5-FU [Suspect]
     Active Substance: FLUOROURACIL
     Dosage: 600 MG (378.8 MG/M2), 1X/DAY
     Route: 040
     Dates: start: 20140901, end: 20140901
  29. 5-FU [Suspect]
     Active Substance: FLUOROURACIL
     Dosage: 600 MG (378.8 MG/M2), 1X/DAY
     Route: 040
     Dates: start: 20141104, end: 20141104
  30. ALOXI [Concomitant]
     Active Substance: PALONOSETRON HYDROCHLORIDE
     Dosage: UNK
     Dates: start: 20140529, end: 20141118
  31. MUCOSTA [Concomitant]
     Active Substance: REBAMIPIDE
     Dosage: UNK
     Dates: start: 20140619, end: 20140625
  32. CAMPTO [Suspect]
     Active Substance: IRINOTECAN
     Dosage: 280 MG (176.8 MG/M2), 1X/DAY
     Route: 041
     Dates: start: 20140714, end: 20140714
  33. CAMPTO [Suspect]
     Active Substance: IRINOTECAN
     Dosage: 180 MG (113.6 MG/M2), 1X/DAY
     Route: 041
     Dates: start: 20140916, end: 20140916
  34. CAMPTO [Suspect]
     Active Substance: IRINOTECAN
     Dosage: 180 MG (113.6 MG/M2), 1X/DAY
     Route: 041
     Dates: start: 20141104, end: 20141104
  35. ELPLAT [Suspect]
     Active Substance: OXALIPLATIN
     Dosage: 100 MG (63.1 MG/M2), 1X/DAY
     Route: 041
     Dates: start: 20141104, end: 20141104
  36. 5-FU [Suspect]
     Active Substance: FLUOROURACIL
     Dosage: 3700 MG (2335.9 MG/M2), ONCE IN 2DAYS
     Route: 041
     Dates: start: 20140916, end: 20140916
  37. 5-FU [Suspect]
     Active Substance: FLUOROURACIL
     Dosage: 3700 MG (2335.9 MG/M2), ONCE IN 2DAYS
     Route: 041
     Dates: start: 20141104, end: 20141104
  38. NEXIUM [Concomitant]
     Active Substance: ESOMEPRAZOLE MAGNESIUM
     Dosage: UNK
     Dates: start: 20140804, end: 20140811
  39. CAMPTO [Suspect]
     Active Substance: IRINOTECAN
     Indication: PANCREATIC CARCINOMA
     Dosage: 280 MG (176.8 MG/M2), 1X/DAY
     Route: 041
     Dates: start: 20140529, end: 20140529
  40. ELPLAT [Suspect]
     Active Substance: OXALIPLATIN
     Indication: PANCREATIC CARCINOMA
     Dosage: 130 MG (82.1 MG/M2), 1X/DAY
     Route: 041
     Dates: start: 20140529, end: 20140529
  41. ELPLAT [Suspect]
     Active Substance: OXALIPLATIN
     Dosage: 100 MG (63.1 MG/M2), 1X/DAY
     Route: 041
     Dates: start: 20140930, end: 20140930
  42. 5-FU [Suspect]
     Active Substance: FLUOROURACIL
     Dosage: 3700 MG (2335.9 MG/M2), ONCE IN 2DAYS
     Route: 041
     Dates: start: 20140616, end: 20140616
  43. 5-FU [Suspect]
     Active Substance: FLUOROURACIL
     Dosage: 600 MG (378.8 MG/M2), 1X/DAY
     Route: 040
     Dates: start: 20140630, end: 20140630
  44. 5-FU [Suspect]
     Active Substance: FLUOROURACIL
     Dosage: 3700 MG (2335.9 MG/M2), ONCE IN 2DAYS
     Route: 041
     Dates: start: 20140901, end: 20140901
  45. 5-FU [Suspect]
     Active Substance: FLUOROURACIL
     Dosage: 3700 MG (2335.9 MG/M2), ONCE IN 2DAYS
     Route: 041
     Dates: start: 20141118, end: 20141118
  46. CAMPTO [Suspect]
     Active Substance: IRINOTECAN
     Dosage: 280 MG (176.8 MG/M2), 1X/DAY
     Route: 041
     Dates: start: 20140616, end: 20140616
  47. ELPLAT [Suspect]
     Active Substance: OXALIPLATIN
     Dosage: 130 MG (82.1 MG/M2), 1X/DAY
     Route: 041
     Dates: start: 20140728, end: 20140728
  48. ELPLAT [Suspect]
     Active Substance: OXALIPLATIN
     Dosage: 100 MG (63.1 MG/M2), 1X/DAY
     Route: 041
     Dates: start: 20141020, end: 20141020
  49. 5-FU [Suspect]
     Active Substance: FLUOROURACIL
     Dosage: 3700 MG (2335.9 MG/M2), ONCE IN 2DAYS
     Route: 041
     Dates: start: 20140529, end: 20140529
  50. 5-FU [Suspect]
     Active Substance: FLUOROURACIL
     Dosage: 600 MG (378.8 MG/M2), 1X/DAY
     Route: 040
     Dates: start: 20140930, end: 20140930
  51. ALEVIATIN [Concomitant]
     Active Substance: PHENYTOIN SODIUM
     Dosage: UNK
     Dates: start: 20140529, end: 20141120
  52. ELENTAL [Concomitant]
     Dosage: UNK
     Dates: start: 20140901, end: 20141120
  53. CAMPTO [Suspect]
     Active Substance: IRINOTECAN
     Dosage: 280 MG (176.8 MG/M2), 1X/DAY
     Route: 041
     Dates: start: 20140630, end: 20140630
  54. CAMPTO [Suspect]
     Active Substance: IRINOTECAN
     Dosage: 180 MG (113.6 MG/M2), 1X/DAY
     Route: 041
     Dates: start: 20141020, end: 20141020
  55. ELPLAT [Suspect]
     Active Substance: OXALIPLATIN
     Dosage: 130 MG (82.1 MG/M2), 1X/DAY
     Route: 041
     Dates: start: 20140616, end: 20140616
  56. ELPLAT [Suspect]
     Active Substance: OXALIPLATIN
     Dosage: 130 MG (82.1 MG/M2), 1X/DAY
     Route: 041
     Dates: start: 20140630, end: 20140630
  57. ELPLAT [Suspect]
     Active Substance: OXALIPLATIN
     Dosage: 100 MG (63.1 MG/M2), 1X/DAY
     Route: 041
     Dates: start: 20140901, end: 20140901
  58. 5-FU [Suspect]
     Active Substance: FLUOROURACIL
     Dosage: 600 MG (378.8 MG/M2), 1X/DAY
     Route: 040
     Dates: start: 20140714, end: 20140714
  59. 5-FU [Suspect]
     Active Substance: FLUOROURACIL
     Dosage: 3700 MG (2335.9 MG/M2), ONCE IN 2DAYS
     Route: 041
     Dates: start: 20140930, end: 20140930
  60. 5-FU [Suspect]
     Active Substance: FLUOROURACIL
     Dosage: 600 MG (378.8 MG/M2), 1X/DAY
     Route: 040
     Dates: start: 20141118, end: 20141118
  61. BUSCOPAN [Concomitant]
     Active Substance: BUTYLSCOPOLAMINE BROMIDE
     Dosage: UNK
     Dates: start: 20140529, end: 20141118
  62. LOXONIN [Concomitant]
     Active Substance: LOXOPROFEN SODIUM
     Dosage: UNK
     Dates: start: 20140619, end: 20140625
  63. CAMPTO [Suspect]
     Active Substance: IRINOTECAN
     Dosage: 240 MG (151.5 MG/M2), 1X/DAY
     Route: 041
     Dates: start: 20140728, end: 20140728

REACTIONS (4)
  - Malaise [Recovering/Resolving]
  - Neuropathy peripheral [Not Recovered/Not Resolved]
  - Neutrophil count decreased [Recovering/Resolving]
  - Platelet count decreased [Recovered/Resolved]

NARRATIVE: CASE EVENT DATE: 20140630
